FAERS Safety Report 24849747 (Version 1)
Quarter: 2025Q1

REPORT INFORMATION
  Report Type: Spontaneous
  Country: FR (occurrence: FR)
  Receive Date: 20250116
  Receipt Date: 20250116
  Transmission Date: 20250409
  Serious: Yes (Hospitalization)
  Sender: Karo Pharma
  Company Number: FR-Karo Pharma-2169101

PATIENT
  Age: 64 Year
  Sex: Male

DRUGS (1)
  1. TERBINAFINE [Suspect]
     Active Substance: TERBINAFINE
     Indication: Fungal infection

REACTIONS (1)
  - Acute generalised exanthematous pustulosis [Recovering/Resolving]
